FAERS Safety Report 8094185-6 (Version None)
Quarter: 2012Q1

REPORT INFORMATION
  Report Type: 
  Country: None (occurrence: None)
  Receive Date: 20120130
  Receipt Date: 20120130
  Transmission Date: 20120608
  Serious: Yes (Other)
  Sender: FDA-Public Use
  Company Number: None

PATIENT
  Age: 6 Year
  Sex: Male
  Weight: 24.493 kg

DRUGS (1)
  1. CEFDINIR [Suspect]
     Indication: THERAPEUTIC PROCEDURE
     Dosage: 3/4 TSP
     Route: 048
     Dates: start: 20120128, end: 20120128

REACTIONS (4)
  - LIP SWELLING [None]
  - LIP PAIN [None]
  - DRUG ADMINISTRATION ERROR [None]
  - CRYING [None]
